FAERS Safety Report 12667691 (Version 2)
Quarter: 2016Q3

REPORT INFORMATION
  Report Type: Spontaneous
  Country: AR (occurrence: AR)
  Receive Date: 20160819
  Receipt Date: 20160822
  Transmission Date: 20161109
  Serious: Yes (Life-Threatening, Hospitalization, Other)
  Sender: FDA-Public Use
  Company Number: PHHY2016AR113752

PATIENT
  Age: 11 Year
  Sex: Female

DRUGS (1)
  1. ZOFRAN [Suspect]
     Active Substance: ONDANSETRON HYDROCHLORIDE
     Indication: CYCLIC VOMITING SYNDROME
     Dosage: 4 MG, UNK
     Route: 065
     Dates: start: 2010

REACTIONS (8)
  - Blood sodium decreased [Unknown]
  - Dehydration [Unknown]
  - Nausea [Unknown]
  - Product use issue [Unknown]
  - Blood potassium decreased [Unknown]
  - Migraine [Unknown]
  - Vomiting [Unknown]
  - Feeling hot [Unknown]

NARRATIVE: CASE EVENT DATE: 20160801
